FAERS Safety Report 23364782 (Version 2)
Quarter: 2024Q1

REPORT INFORMATION
  Report Type: Spontaneous
  Country: US (occurrence: US)
  Receive Date: 20240104
  Receipt Date: 20240108
  Transmission Date: 20240410
  Serious: Yes (Hospitalization, Other)
  Sender: FDA-Public Use
  Company Number: None

PATIENT
  Age: 69 Year
  Sex: Male

DRUGS (1)
  1. ATORVASTATIN CALCIUM [Suspect]
     Active Substance: ATORVASTATIN CALCIUM
     Indication: Coronary artery disease
     Dosage: UNK
     Route: 065

REACTIONS (3)
  - Autoimmune myositis [Recovering/Resolving]
  - Myopathy [Recovering/Resolving]
  - Autoimmune disorder [Recovering/Resolving]
